FAERS Safety Report 10759981 (Version 1)
Quarter: 2015Q1

REPORT INFORMATION
  Report Type: Spontaneous
  Country: US (occurrence: US)
  Receive Date: 20150203
  Receipt Date: 20150203
  Transmission Date: 20150721
  Serious: Yes (Other)
  Sender: FDA-Public Use
  Company Number: PHHY2015US010502

PATIENT
  Age: 24 Year
  Sex: Male

DRUGS (3)
  1. VINCRISTINE [Suspect]
     Active Substance: VINCRISTINE
     Indication: NEUROBLASTOMA
     Route: 065
  2. DACARBAZINE. [Suspect]
     Active Substance: DACARBAZINE
     Indication: NEUROBLASTOMA
     Route: 065
  3. DOXORUBICIN [Suspect]
     Active Substance: DOXORUBICIN
     Indication: NEUROBLASTOMA
     Route: 065

REACTIONS (8)
  - Polyp [Unknown]
  - Haematochezia [Unknown]
  - Large intestine polyp [Unknown]
  - Colon adenoma [Unknown]
  - Gastric polyps [Unknown]
  - Hamartoma [Unknown]
  - Adenoma benign [Unknown]
  - Rectal adenoma [Unknown]
